FAERS Safety Report 9805307 (Version 11)
Quarter: 2015Q2

REPORT INFORMATION
  Report Type: Report from Study
  Country: DE (occurrence: DE)
  Receive Date: 20140109
  Receipt Date: 20150504
  Transmission Date: 20150821
  Serious: Yes (Other)
  Sender: FDA-Public Use
  Company Number: DE-BEH-2014039955

PATIENT
  Age: 13 Year
  Sex: Male
  Weight: 64 kg

DRUGS (8)
  1. HIZENTRA [Suspect]
     Active Substance: HUMAN IMMUNOGLOBULIN G
     Dosage: INFUSION RATE APPROX. 0.5 ML/MIN, SOLUTION STRENGTH 20 %
     Route: 058
     Dates: start: 20131222, end: 20131222
  2. SALBU NOVOLIZER [Concomitant]
  3. HIZENTRA [Suspect]
     Active Substance: HUMAN IMMUNOGLOBULIN G
     Dosage: START DATE ??-MAY-2014, SOLUTION STRENGTH 20 %
     Route: 058
  4. HIZENTRA [Suspect]
     Active Substance: HUMAN IMMUNOGLOBULIN G
     Dosage: START DATE ??-NOV-2014, SOLUTION STRENGTH 20 %
     Route: 058
  5. ZYRTEC [Concomitant]
     Active Substance: CETIRIZINE HYDROCHLORIDE
     Indication: PREMEDICATION
     Dosage: 1 TABLET BEFORE HIZENTRA ADMINISTRATION
  6. HIZENTRA [Suspect]
     Active Substance: HUMAN IMMUNOGLOBULIN G
     Indication: IMMUNODEFICIENCY COMMON VARIABLE
     Dosage: INFUSION RATE APPROX. 0.5 ML/MIN, SOLUTION STRENGTH 20 %
     Route: 058
     Dates: start: 20131215, end: 20131215
  7. HIZENTRA [Suspect]
     Active Substance: HUMAN IMMUNOGLOBULIN G
     Dosage: INFUSION RATE 20ML/H, TOTAL DOSE 125 MG/KG, 2 INJECTION SITES (BELLY), INJECTION VOLUME/SITE 20 ML
     Route: 058
     Dates: start: 20131127, end: 20131127
  8. COTRIMOXAZOL [Concomitant]
     Active Substance: SULFAMETHOXAZOLE\TRIMETHOPRIM

REACTIONS (13)
  - Papule [Recovered/Resolved with Sequelae]
  - Purulent discharge [Recovered/Resolved with Sequelae]
  - Blister [Recovered/Resolved with Sequelae]
  - Pain [Unknown]
  - Swelling [Unknown]
  - Secretion discharge [Not Recovered/Not Resolved]
  - Rash pustular [Recovered/Resolved with Sequelae]
  - Scar [Recovered/Resolved with Sequelae]
  - Pruritus [Not Recovered/Not Resolved]
  - Blister [Not Recovered/Not Resolved]
  - Skin ulcer [Recovered/Resolved with Sequelae]
  - Induration [Not Recovered/Not Resolved]
  - Inflammation [Not Recovered/Not Resolved]

NARRATIVE: CASE EVENT DATE: 201312
